FAERS Safety Report 17139857 (Version 1)
Quarter: 2019Q4

REPORT INFORMATION
  Report Type: Report from Study
  Country: US (occurrence: US)
  Receive Date: 20191211
  Receipt Date: 20191211
  Transmission Date: 20200122
  Serious: No
  Sender: FDA-Public Use
  Company Number: NVSC2019US065836

PATIENT
  Age: 61 Year
  Sex: Female

DRUGS (1)
  1. COSENTYX [Suspect]
     Active Substance: SECUKINUMAB
     Indication: PSORIASIS
     Dosage: 300 MG, QW
     Route: 058

REACTIONS (7)
  - Dizziness postural [Unknown]
  - Pain of skin [Unknown]
  - Pyrexia [Unknown]
  - Cough [Unknown]
  - Throat irritation [Unknown]
  - Nausea [Unknown]
  - Body temperature fluctuation [Unknown]
